FAERS Safety Report 5284865-X (Version None)
Quarter: 2007Q2

REPORT INFORMATION
  Report Type: 
  Country: None (occurrence: None)
  Receive Date: 20070403
  Receipt Date: 20070327
  Transmission Date: 20071010
  Serious: Yes (Hospitalization)
  Sender: FDA-Public Use
  Company Number: FR-ROCHE-489972

PATIENT
  Age: 41 Year
  Sex: Male

DRUGS (2)
  1. ROCEPHIN [Suspect]
     Route: 065
  2. ROCEPHIN [Suspect]
     Route: 065
     Dates: start: 20020615

REACTIONS (1)
  - PULMONARY EMBOLISM [None]
